FAERS Safety Report 9228148 (Version 2)
Quarter: 2013Q2

REPORT INFORMATION
  Report Type: Report from Study
  Country: CA (occurrence: CA)
  Receive Date: 20130412
  Receipt Date: 20130509
  Transmission Date: 20140414
  Serious: Yes (Other)
  Sender: FDA-Public Use
  Company Number: CA-ROCHE-1209891

PATIENT
  Sex: 0

DRUGS (1)
  1. ALTEPLASE [Suspect]
     Indication: ISCHAEMIC STROKE
     Dosage: WITHIN 3 HOURS OF SYMPTOM ONSET
     Route: 042

REACTIONS (4)
  - Disease progression [Unknown]
  - Drug ineffective [Unknown]
  - Cerebral artery occlusion [Unknown]
  - Cerebral haemorrhage [Unknown]
